FAERS Safety Report 13967183 (Version 1)
Quarter: 2017Q3

REPORT INFORMATION
  Report Type: Spontaneous
  Country: US (occurrence: US)
  Receive Date: 20170914
  Receipt Date: 20170914
  Transmission Date: 20171128
  Serious: No
  Sender: FDA-Public Use
  Company Number: US-AUROBINDO-AUR-APU-2017-00451

PATIENT
  Age: 48 Year
  Sex: Female
  Weight: 49.43 kg

DRUGS (2)
  1. DOXYCYCLINE. [Concomitant]
     Active Substance: DOXYCYCLINE
     Indication: PRODUCT USED FOR UNKNOWN INDICATION
     Route: 065
  2. CLARITHROMYCIN TABLETS USP 250 MG [Suspect]
     Active Substance: CLARITHROMYCIN
     Indication: LYME DISEASE
     Dosage: 1 DF, TWO TIMES A DAY
     Route: 065
     Dates: start: 20161107

REACTIONS (1)
  - Hypoacusis [Not Recovered/Not Resolved]

NARRATIVE: CASE EVENT DATE: 2016
